FAERS Safety Report 23230457 (Version 1)
Quarter: 2023Q4

REPORT INFORMATION
  Report Type: Spontaneous
  Country: KR (occurrence: KR)
  Receive Date: 20231127
  Receipt Date: 20231127
  Transmission Date: 20240109
  Serious: Yes (Other)
  Sender: FDA-Public Use
  Company Number: KR-VALIDUS PHARMACEUTICALS LLC-KR-VDP-2023-017465

PATIENT

DRUGS (1)
  1. LASIX [Suspect]
     Active Substance: FUROSEMIDE
     Indication: Cardiac failure
     Dosage: 1 DF, TID
     Route: 065
     Dates: start: 20191007

REACTIONS (1)
  - Hallucination [Recovered/Resolved]

NARRATIVE: CASE EVENT DATE: 20191007
